FAERS Safety Report 7380812-5 (Version None)
Quarter: 2011Q1

REPORT INFORMATION
  Report Type: 
  Country: None (occurrence: None)
  Receive Date: 20110329
  Receipt Date: 20110322
  Transmission Date: 20110831
  Serious: Yes (Life-Threatening, Hospitalization, Disabling, Other)
  Sender: FDA-Public Use
  Company Number: A0919423A

PATIENT
  Age: 55 Year
  Sex: Male

DRUGS (2)
  1. PAIN MEDICATION [Concomitant]
  2. ARIXTRA [Suspect]
     Indication: HEPARIN-INDUCED THROMBOCYTOPENIA
     Dosage: 7.5MG PER DAY
     Route: 058
     Dates: start: 20101001, end: 20110315

REACTIONS (1)
  - THROMBOSIS [None]
